FAERS Safety Report 9861128 (Version 1)
Quarter: 2014Q1

REPORT INFORMATION
  Report Type: Spontaneous
  Country: US (occurrence: US)
  Receive Date: 20140202
  Receipt Date: 20140202
  Transmission Date: 20141002
  Serious: No
  Sender: FDA-Public Use
  Company Number: US-ALLERGAN-1303564US

PATIENT
  Age: 36 Year
  Sex: Female

DRUGS (3)
  1. BOTOX COSMETIC [Suspect]
     Indication: SKIN WRINKLING
     Dosage: UNK, SINGLE
     Route: 030
     Dates: start: 20130309, end: 20130309
  2. BOTOX COSMETIC [Suspect]
     Indication: SKIN WRINKLING
  3. BIRTH CONTROL PILLS [Concomitant]
     Indication: CONTRACEPTION
     Dosage: UNK

REACTIONS (5)
  - Skin disorder [Unknown]
  - Rash erythematous [Recovering/Resolving]
  - Urticaria [Recovering/Resolving]
  - Urticaria [Unknown]
  - Urticaria [Recovering/Resolving]
